FAERS Safety Report 25414088 (Version 1)
Quarter: 2025Q2

REPORT INFORMATION
  Report Type: Spontaneous
  Country: HR (occurrence: HR)
  Receive Date: 20250609
  Receipt Date: 20250609
  Transmission Date: 20250717
  Serious: Yes (Other)
  Sender: NOVARTIS
  Company Number: HR-002147023-NVSC2025HR089062

PATIENT
  Sex: Female

DRUGS (2)
  1. COSENTYX [Suspect]
     Active Substance: SECUKINUMAB
     Indication: Psoriasis
     Route: 058
     Dates: start: 2022
  2. COSENTYX [Suspect]
     Active Substance: SECUKINUMAB
     Indication: Hidradenitis

REACTIONS (2)
  - Endometrial adenocarcinoma [Unknown]
  - Polyglandular disorder [Unknown]

NARRATIVE: CASE EVENT DATE: 20240701
